FAERS Safety Report 21001953 (Version 2)
Quarter: 2022Q2

REPORT INFORMATION
  Report Type: Spontaneous
  Country: US (occurrence: US)
  Receive Date: 20220624
  Receipt Date: 20220630
  Transmission Date: 20220720
  Serious: Yes (Other)
  Sender: FDA-Public Use
  Company Number: US-009507513-2206USA004076

PATIENT
  Age: 59 Year
  Sex: Male
  Weight: 9.977 kg

DRUGS (3)
  1. MOLNUPIRAVIR [Suspect]
     Active Substance: MOLNUPIRAVIR
     Indication: COVID-19
     Dosage: 4 CAPSULES, TWICE A DAY
     Route: 048
     Dates: start: 20220611, end: 20220611
  2. MOLNUPIRAVIR [Suspect]
     Active Substance: MOLNUPIRAVIR
     Dosage: 4 CAPSULES TWICE A DAY, THE FIRST DOSE ON THE SECOND DAY AT 8 A.M.
     Route: 048
     Dates: start: 20220612, end: 20220612
  3. LEVOTHYROXINE [Concomitant]
     Active Substance: LEVOTHYROXINE
     Dosage: 100 MILLIGRAM
     Route: 048
     Dates: start: 2020

REACTIONS (3)
  - Throat tightness [Recovering/Resolving]
  - Product use complaint [Unknown]
  - Intentional dose omission [Unknown]

NARRATIVE: CASE EVENT DATE: 20220601
